FAERS Safety Report 9292493 (Version 1)
Quarter: 2013Q2

REPORT INFORMATION
  Report Type: Spontaneous
  Country: US (occurrence: US)
  Receive Date: 20130516
  Receipt Date: 20130516
  Transmission Date: 20140414
  Serious: Yes (Other)
  Sender: FDA-Public Use
  Company Number: US-PFIZER INC-2013147123

PATIENT
  Age: 54 Year
  Sex: Female
  Weight: 72.56 kg

DRUGS (6)
  1. NEURONTIN [Suspect]
     Indication: BACK DISORDER
     Dosage: UNK
  2. DICLOFENAC [Suspect]
     Indication: BACK DISORDER
     Dosage: UNK
  3. VENLAFAXINE [Concomitant]
     Dosage: UNK
  4. METOPROLOL [Concomitant]
     Dosage: UNK
  5. HYDROCHLOROTHIAZIDE [Concomitant]
     Dosage: UNK
  6. EFFEXOR [Concomitant]
     Dosage: UNK

REACTIONS (6)
  - Wrist fracture [Unknown]
  - Road traffic accident [Unknown]
  - Back pain [Unknown]
  - Neck pain [Unknown]
  - Myofascial pain syndrome [Unknown]
  - Spinal osteoarthritis [Unknown]
